FAERS Safety Report 5523462-5 (Version None)
Quarter: 2007Q4

REPORT INFORMATION
  Report Type: 
  Country: None (occurrence: None)
  Receive Date: 20071119
  Receipt Date: 20071119
  Transmission Date: 20080405
  Serious: No
  Sender: FDA-Public Use
  Company Number: None

PATIENT
  Age: 29 Year
  Sex: Male

DRUGS (2)
  1. DEPAKOTE [Suspect]
     Dosage: TABLET, DELAYED RELEASE
  2. DEPAKOTE ER [Suspect]
     Dosage: TABLET, EXTENDED RELEASE

REACTIONS (3)
  - DRUG DISPENSING ERROR [None]
  - MEDICATION ERROR [None]
  - WRONG DRUG ADMINISTERED [None]
